FAERS Safety Report 4463873-2 (Version None)
Quarter: 2004Q3

REPORT INFORMATION
  Report Type: 
  Country: None (occurrence: None)
  Receive Date: 20040929
  Receipt Date: 20040916
  Transmission Date: 20050211
  Serious: Yes (Death, Hospitalization)
  Sender: FDA-Public Use
  Company Number: PERI00201004051

PATIENT
  Age: 74 Year
  Sex: Male
  Weight: 68 kg

DRUGS (4)
  1. COVERSYL (PERINDOPRIL) [Suspect]
     Indication: CARDIAC FAILURE CONGESTIVE
     Dosage: 2 MG QD PO
     Route: 048
     Dates: start: 19960507, end: 19990611
  2. SERMION (NICERGOLINE) [Concomitant]
  3. PREVISCAN (FLUINDIONE) [Concomitant]
  4. LASIX [Concomitant]

REACTIONS (4)
  - DEMENTIA [None]
  - EPILEPSY [None]
  - HIP FRACTURE [None]
  - MENTAL IMPAIRMENT [None]
